FAERS Safety Report 4476725-9 (Version None)
Quarter: 2004Q4

REPORT INFORMATION
  Report Type: 
  Country: None (occurrence: None)
  Receive Date: 20041013
  Receipt Date: 20040930
  Transmission Date: 20050328
  Serious: No
  Sender: FDA-Public Use
  Company Number: 2004UW20615

PATIENT
  Sex: Female

DRUGS (2)
  1. SEROQUEL [Suspect]
     Indication: INSOMNIA
     Dosage: 25-50 MG
  2. KLONOPIN [Concomitant]

REACTIONS (2)
  - ABORTION SPONTANEOUS [None]
  - DRUG EXPOSURE DURING PREGNANCY [None]
